FAERS Safety Report 24862102 (Version 2)
Quarter: 2025Q1

REPORT INFORMATION
  Report Type: Spontaneous
  Country: US (occurrence: US)
  Receive Date: 20250120
  Receipt Date: 20250120
  Transmission Date: 20250408
  Serious: No
  Sender: CSL BEHRING
  Company Number: US-BEH-2024186951

PATIENT
  Age: 53 Year
  Sex: Male
  Weight: 77.2 kg

DRUGS (3)
  1. MIRCERA [Suspect]
     Active Substance: METHOXY POLYETHYLENE GLYCOL-EPOETIN BETA
     Route: 065
  2. MIRCERA [Suspect]
     Active Substance: METHOXY POLYETHYLENE GLYCOL-EPOETIN BETA
     Route: 042
  3. VENOFER [Suspect]
     Active Substance: IRON SUCROSE
     Route: 042

REACTIONS (2)
  - Flushing [Unknown]
  - Feeling abnormal [Unknown]

NARRATIVE: CASE EVENT DATE: 20141116
